FAERS Safety Report 17555810 (Version 1)
Quarter: 2020Q1

REPORT INFORMATION
  Report Type: Spontaneous
  Country: FR (occurrence: FR)
  Receive Date: 20200318
  Receipt Date: 20200318
  Transmission Date: 20200409
  Serious: Yes (Other)
  Sender: FDA-Public Use
  Company Number: FR-MYLANLABS-2020M1027239

PATIENT
  Age: 67 Year
  Sex: Female
  Weight: 45 kg

DRUGS (6)
  1. ONDANSETRON [Suspect]
     Active Substance: ONDANSETRON
     Indication: NEUROENDOCRINE TUMOUR
     Dosage: 8 MILLIGRAM
     Route: 065
     Dates: start: 201702
  2. DEXCHLORPHENIRAMINE [Suspect]
     Active Substance: DEXCHLORPHENIRAMINE
     Indication: NEUROENDOCRINE TUMOUR
     Dosage: 5 MILLIGRAM
     Route: 065
     Dates: start: 201702
  3. LANREOTIDE [Suspect]
     Active Substance: LANREOTIDE
     Indication: NEUROENDOCRINE TUMOUR
     Dosage: 120 MILLIGRAM
     Route: 065
     Dates: start: 201702
  4. LUTETIUM (LU 177) [Suspect]
     Active Substance: LUTETIUM LU-177
     Indication: NEUROENDOCRINE TUMOUR
     Dosage: 7.255 GIGABECQUEREL
     Route: 065
     Dates: start: 201702
  5. METOCLOPRAMIDE. [Suspect]
     Active Substance: METOCLOPRAMIDE
     Indication: VOMITING
     Dosage: UNK
     Route: 065
     Dates: start: 202002
  6. METHYLPREDNISOLONE. [Suspect]
     Active Substance: METHYLPREDNISOLONE
     Indication: NEUROENDOCRINE TUMOUR
     Dosage: 40 MG IN 30 MINUTES
     Route: 065
     Dates: start: 201702

REACTIONS (4)
  - Metabolic acidosis [Recovered/Resolved]
  - Muscle spasms [Recovered/Resolved]
  - Aminoaciduria [Recovered/Resolved]
  - Proteinuria [Recovered/Resolved]

NARRATIVE: CASE EVENT DATE: 201702
